FAERS Safety Report 6324514-2 (Version None)
Quarter: 2009Q3

REPORT INFORMATION
  Report Type: 
  Country: None (occurrence: None)
  Receive Date: 20090824
  Receipt Date: 20090813
  Transmission Date: 20100115
  Serious: Yes (Other)
  Sender: FDA-Public Use
  Company Number: US-JNJFOC-20090804748

PATIENT

DRUGS (5)
  1. TAPENTADOL HYDROCHLORIDE [Suspect]
     Route: 048
  2. TAPENTADOL HYDROCHLORIDE [Suspect]
     Route: 048
  3. TAPENTADOL HYDROCHLORIDE [Suspect]
     Indication: PAIN
     Dosage: 6X 50 MG
     Route: 048
  4. CYMBALTA [Interacting]
     Indication: HERPES ZOSTER
     Route: 065
  5. PERCOCET [Concomitant]
     Indication: HERPES ZOSTER

REACTIONS (2)
  - DRUG INTERACTION [None]
  - WITHDRAWAL SYNDROME [None]
